FAERS Safety Report 15960186 (Version 1)
Quarter: 2019Q1

REPORT INFORMATION
  Report Type: Spontaneous
  Country: GB (occurrence: GB)
  Receive Date: 20190214
  Receipt Date: 20190214
  Transmission Date: 20190417
  Serious: Yes (Other)
  Sender: FDA-Public Use
  Company Number: GB-TEVA-2019-GB-1009605

PATIENT
  Age: 9 Year
  Sex: Female

DRUGS (1)
  1. DELMOSART [Suspect]
     Active Substance: METHYLPHENIDATE HYDROCHLORIDE
     Indication: ATTENTION DEFICIT/HYPERACTIVITY DISORDER
     Route: 048
     Dates: start: 20171001

REACTIONS (6)
  - Disturbance in attention [Unknown]
  - Aggression [Unknown]
  - Decreased appetite [Unknown]
  - Anger [Unknown]
  - Abnormal behaviour [Unknown]
  - Affect lability [Unknown]
